FAERS Safety Report 12652398 (Version 1)
Quarter: 2016Q3

REPORT INFORMATION
  Report Type: Spontaneous
  Country: US (occurrence: US)
  Receive Date: 20160815
  Receipt Date: 20160815
  Transmission Date: 20161109
  Serious: No
  Sender: FDA-Public Use
  Company Number: US-PFIZER INC-2016358471

PATIENT
  Age: 63 Year
  Sex: Female

DRUGS (2)
  1. LEVOTHYROXINE SODIUM. [Suspect]
     Active Substance: LEVOTHYROXINE SODIUM
     Indication: THYROID DISORDER
     Dosage: 88 UG, 1X/DAY
     Route: 048
     Dates: start: 201603, end: 201606
  2. NATURE-THROID [Concomitant]
     Active Substance: THYROID, PORCINE
     Indication: TRI-IODOTHYRONINE INCREASED
     Dosage: 25 UG, 1X/DAY
     Route: 048

REACTIONS (7)
  - Feeling abnormal [Recovered/Resolved]
  - Feeling hot [Recovered/Resolved]
  - Palpitations [Recovered/Resolved]
  - Hair texture abnormal [Recovered/Resolved]
  - Weight decreased [Unknown]
  - Alopecia [Recovered/Resolved]
  - Dry skin [Recovered/Resolved]
